FAERS Safety Report 17445183 (Version 3)
Quarter: 2020Q4

REPORT INFORMATION
  Report Type: Spontaneous
  Country: US (occurrence: US)
  Receive Date: 20200221
  Receipt Date: 20201217
  Transmission Date: 20210113
  Serious: No
  Sender: FDA-Public Use
  Company Number: US-PFIZER INC-2020076850

PATIENT
  Age: 71 Year
  Sex: Female

DRUGS (1)
  1. XELJANZ XR [Suspect]
     Active Substance: TOFACITINIB CITRATE
     Dosage: 11 MG

REACTIONS (7)
  - Gait disturbance [Unknown]
  - Arthritis [Unknown]
  - Gastric disorder [Unknown]
  - Frustration tolerance decreased [Unknown]
  - Peripheral swelling [Unknown]
  - Pain [Unknown]
  - Condition aggravated [Unknown]
